FAERS Safety Report 24453904 (Version 2)
Quarter: 2024Q4

REPORT INFORMATION
  Report Type: Spontaneous
  Country: IT (occurrence: IT)
  Receive Date: 20241017
  Receipt Date: 20241018
  Transmission Date: 20250115
  Serious: No
  Sender: ROCHE
  Company Number: None

PATIENT
  Age: 76 Year
  Sex: Female
  Weight: 50.0 kg

DRUGS (6)
  1. MABTHERA [Suspect]
     Active Substance: RITUXIMAB
     Indication: Product used for unknown indication
     Dosage: 1 G/DAY 6 MONTHS
     Route: 065
     Dates: start: 2018, end: 202303
  2. BISOPROLOL FUMARATE [Concomitant]
     Active Substance: BISOPROLOL FUMARATE
     Dosage: 1 CP DIE
     Dates: start: 2022, end: 20231106
  3. ZOLEDRONIC ACID [Concomitant]
     Active Substance: ZOLEDRONIC ACID
     Dosage: 1 FL AGNI 30 GG
     Dates: end: 202310
  4. CREON [Concomitant]
     Active Substance: PANCRELIPASE AMYLASE\PANCRELIPASE LIPASE\PANCRELIPASE PROTEASE
     Indication: Pancreatitis
  5. PREDNISONE [Concomitant]
     Active Substance: PREDNISONE
     Dosage: 2 CP
     Route: 065
     Dates: start: 202307, end: 20231106
  6. FOLINA [Concomitant]

REACTIONS (2)
  - Rheumatoid arthritis [Unknown]
  - Arthralgia [Unknown]

NARRATIVE: CASE EVENT DATE: 20230601
